FAERS Safety Report 9097615 (Version 2)
Quarter: 2014Q1

REPORT INFORMATION
  Report Type: Report from Study
  Country: NL (occurrence: NL)
  Receive Date: 20130212
  Receipt Date: 20140312
  Transmission Date: 20141002
  Serious: Yes (Death, Other)
  Sender: FDA-Public Use
  Company Number: PHHY2013NL013051

PATIENT
  Sex: Male

DRUGS (1)
  1. ZOMETA [Suspect]
     Indication: PROSTATE CANCER METASTATIC
     Dosage: 4 MG PER 100ML, ONE PER 28 DAYS
     Route: 042
     Dates: end: 20130131

REACTIONS (2)
  - Prostate cancer metastatic [Fatal]
  - Terminal state [Unknown]
